FAERS Safety Report 14411499 (Version 6)
Quarter: 2018Q2

REPORT INFORMATION
  Report Type: Spontaneous
  Country: FR (occurrence: FR)
  Receive Date: 20180119
  Receipt Date: 20180517
  Transmission Date: 20180711
  Serious: Yes (Other)
  Sender: FDA-Public Use
  Company Number: FR-PFIZER INC-2018025536

PATIENT
  Age: 75 Year
  Sex: Male
  Weight: 84 kg

DRUGS (13)
  1. KOMBOGLYZE [Concomitant]
     Active Substance: METFORMIN HYDROCHLORIDE\SAXAGLIPTIN
     Indication: DIABETES MELLITUS
     Dosage: 2 DOSAGE FORMS DAILY; LONG COURSE TREATMENT FOR MORE THAN 20 YEARS
     Route: 065
  2. CISPLATINE TEVA [Suspect]
     Active Substance: CISPLATIN
     Indication: BLADDER CANCER
     Dosage: UNK, CYCLIC
     Route: 065
     Dates: start: 20171101
  3. GEMCITABINE [Suspect]
     Active Substance: GEMCITABINE\GEMCITABINE HYDROCHLORIDE
     Indication: BLADDER CANCER
     Dosage: UNK, CYCLIC
     Route: 065
     Dates: start: 20171101, end: 201712
  4. GEMCITABINE [Suspect]
     Active Substance: GEMCITABINE\GEMCITABINE HYDROCHLORIDE
     Dosage: ONE COURSE ON 20, 21 AND 22-DEC-2017
     Route: 065
     Dates: start: 201712
  5. INNOHEP [Concomitant]
     Active Substance: TINZAPARIN SODIUM
     Dosage: 15000 IU, UNK
     Route: 065
     Dates: start: 201712
  6. NOVONORM [Concomitant]
     Active Substance: REPAGLINIDE
     Dosage: 3 DOSAGE FORMS DAILY; LONG COURSE TREATMENT FOR MORE THAN 20 YEARS
  7. AMLODIPINE [Concomitant]
     Active Substance: AMLODIPINE BESYLATE
     Dosage: 1 DOSAGE FORMS DAILY; LONG COURSE TREATMENT FOR MORE THAN 20 YEARS
     Route: 065
  8. METFORMIN [Concomitant]
     Active Substance: METFORMIN HYDROCHLORIDE
     Indication: DIABETES MELLITUS
     Dosage: UNK
     Route: 065
  9. ATENOLOL. [Concomitant]
     Active Substance: ATENOLOL
     Dosage: 50 MG, UNK
     Route: 065
  10. TOUJEO [Concomitant]
     Active Substance: INSULIN GLARGINE
     Indication: DIABETES MELLITUS
     Dosage: 12 IU (INTERNATIONAL UNIT) DAILY
     Route: 065
     Dates: start: 20171230
  11. SIMVASTATIN. [Concomitant]
     Active Substance: SIMVASTATIN
     Dosage: .5 DOSAGE FORMS DAILY; LONG COURSE TREATMENT FOR MORE THAN 20 YEARS
  12. PREVISCAN (FLUINDIONE) [Concomitant]
     Active Substance: FLUINDIONE
     Dosage: REPLACED WITH INNOHEP IN MID DECEMBER 2017
     Route: 065
     Dates: end: 201712
  13. CISPLATINE TEVA [Suspect]
     Active Substance: CISPLATIN
     Dosage: ONE COURSE ON 20, 21 AND 22-DEC-2017
     Route: 065
     Dates: start: 201712

REACTIONS (6)
  - General physical health deterioration [Not Recovered/Not Resolved]
  - Gait disturbance [Not Recovered/Not Resolved]
  - Peripheral swelling [Not Recovered/Not Resolved]
  - Phlebitis [Not Recovered/Not Resolved]
  - Pain in extremity [Not Recovered/Not Resolved]
  - Pain [Not Recovered/Not Resolved]

NARRATIVE: CASE EVENT DATE: 20171201
